FAERS Safety Report 8515635-4 (Version None)
Quarter: 2012Q3

REPORT INFORMATION
  Report Type: 
  Country: None (occurrence: None)
  Receive Date: 20120717
  Receipt Date: 20120712
  Transmission Date: 20120928
  Serious: Yes (Disabling)
  Sender: FDA-Public Use
  Company Number: PHHY2012IN059521

PATIENT
  Sex: Female

DRUGS (3)
  1. TASIGNA [Suspect]
     Dosage: 400 MG, QD
     Route: 048
     Dates: start: 20120508, end: 20120701
  2. ESLO [Concomitant]
     Indication: HYPERTENSION
     Dosage: 2.5 MG, UNK
  3. TASIGNA [Suspect]
     Indication: CHRONIC MYELOID LEUKAEMIA
     Dosage: 300 MG, BID
     Route: 048
     Dates: start: 20120328, end: 20120424

REACTIONS (3)
  - ALOPECIA [None]
  - BLOOD BILIRUBIN INCREASED [None]
  - DRUG INTOLERANCE [None]
